FAERS Safety Report 12803844 (Version 1)
Quarter: 2016Q4

REPORT INFORMATION
  Report Type: Spontaneous
  Country: IT (occurrence: IT)
  Receive Date: 20161003
  Receipt Date: 20161003
  Transmission Date: 20170207
  Serious: Yes (Other)
  Sender: FDA-Public Use
  Company Number: PHHY2016IT134375

PATIENT
  Age: 39 Year
  Sex: Female
  Weight: 65 kg

DRUGS (7)
  1. TERIZIDONE [Concomitant]
     Active Substance: TERIZIDONE
     Indication: TUBERCULOSIS
     Dosage: 1 G, UNK
     Route: 065
     Dates: start: 20160225
  2. CLOFAZIMINE [Suspect]
     Active Substance: CLOFAZIMINE
     Indication: TUBERCULOSIS
     Dosage: 200 MG, UNK
     Route: 065
     Dates: start: 20160225
  3. DELAMANID [Interacting]
     Active Substance: DELAMANID
     Indication: TUBERCULOSIS
     Dosage: 200 MG, UNK
     Route: 065
     Dates: start: 20160225
  4. AMOXICILLIN + CLAVULANIC ACID [Concomitant]
     Active Substance: AMOXICILLIN\CLAVULANIC ACID
     Indication: TUBERCULOSIS
     Dosage: 1 G/200 MG, TID
     Route: 042
     Dates: start: 20160225
  5. BEDAQUILINE [Interacting]
     Active Substance: BEDAQUILINE
     Dosage: UNK
     Route: 065
     Dates: start: 20160312
  6. MEROPENEM. [Concomitant]
     Active Substance: MEROPENEM
     Indication: TUBERCULOSIS
     Dosage: 1 G, TID
     Route: 065
     Dates: start: 20160225
  7. BEDAQUILINE [Interacting]
     Active Substance: BEDAQUILINE
     Indication: TUBERCULOSIS
     Dosage: 400 MG, UNK
     Route: 065
     Dates: start: 20160225, end: 20160307

REACTIONS (2)
  - Product use issue [Unknown]
  - Electrocardiogram QT prolonged [Unknown]

NARRATIVE: CASE EVENT DATE: 20160303
